FAERS Safety Report 4950253-6 (Version None)
Quarter: 2006Q1

REPORT INFORMATION
  Report Type: 
  Country: None (occurrence: None)
  Receive Date: 20060322
  Receipt Date: 20060316
  Transmission Date: 20060701
  Serious: Yes (Death)
  Sender: FDA-Public Use
  Company Number: JO-BRACCO-BRO-009894

PATIENT
  Age: 35 Year
  Sex: Female

DRUGS (2)
  1. MULTIHANCE [Suspect]
     Route: 042
     Dates: start: 20060314, end: 20060314
  2. CHEMOTHERAPY [Concomitant]
     Route: 050

REACTIONS (3)
  - DYSPNOEA [None]
  - LOSS OF CONSCIOUSNESS [None]
  - TACHYCARDIA [None]
